FAERS Safety Report 12420728 (Version 1)
Quarter: 2016Q2

REPORT INFORMATION
  Report Type: Spontaneous
  Country: JP (occurrence: JP)
  Receive Date: 20160531
  Receipt Date: 20160531
  Transmission Date: 20160815
  Serious: Yes (Other)
  Sender: FDA-Public Use
  Company Number: JP-DSJP-DSJ-2016-117534

PATIENT

DRUGS (11)
  1. AMARYL [Concomitant]
     Active Substance: GLIMEPIRIDE
     Dosage: 3 MG, BID, BEFORE BREAKFAST AND BEFORE LUNCH
     Route: 065
  2. FLUITRAN [Concomitant]
     Active Substance: TRICHLORMETHIAZIDE
     Dosage: 1 MG, QD, AFTER EACH MEAL
     Route: 065
  3. ACTONEL [Concomitant]
     Active Substance: RISEDRONATE SODIUM
     Dosage: 2.5 MG, QD, BEFORE BREAKFAST 30 MINUTES
     Route: 065
  4. TANATRIL [Concomitant]
     Active Substance: IMIDAPRIL
     Dosage: 5 MG, QD, AFTER BREAKFAST
     Route: 065
  5. ACTOS [Concomitant]
     Active Substance: PIOGLITAZONE HYDROCHLORIDE
     Dosage: 30 MG, QD, AFTER BREAKFAST
     Route: 065
  6. SELARA [Concomitant]
     Active Substance: EPLERENONE
     Dosage: 50 MG, QD, AFTER BREAKFAST
     Route: 065
  7. OLMETEC TABLETS 20MG [Suspect]
     Active Substance: OLMESARTAN MEDOXOMIL
     Indication: PRODUCT USED FOR UNKNOWN INDICATION
     Dosage: 20 MG, QD
     Route: 065
  8. PLATIBIT [Concomitant]
     Dosage: 1.0 ?G, QD, AFTER DINNER
     Route: 065
  9. CHOLEBINE [Concomitant]
     Active Substance: COLESTILAN CHLORIDE
     Dosage: 1.81 G, BID, AFTER BREAKFAST AND AFTER DINNER
     Route: 065
  10. CALBLOCK [Concomitant]
     Active Substance: AZELNIDIPINE
     Dosage: 16 MG, QD, AFTER BREAKFAST
     Route: 065
  11. RASILEZ [Concomitant]
     Active Substance: ALISKIREN
     Dosage: 150 MG, QD, AFTER BREAKFAST
     Route: 065

REACTIONS (2)
  - Gait disturbance [Not Recovered/Not Resolved]
  - Diarrhoea [Recovered/Resolved]

NARRATIVE: CASE EVENT DATE: 20110530
